FAERS Safety Report 8256619-3 (Version None)
Quarter: 2012Q2

REPORT INFORMATION
  Report Type: 
  Country: None (occurrence: None)
  Receive Date: 20120403
  Receipt Date: 20120326
  Transmission Date: 20120825
  Serious: Yes (Other)
  Sender: FDA-Public Use
  Company Number: US-TEVA-330618USA

PATIENT
  Age: 27 Year
  Sex: Male

DRUGS (3)
  1. ZOLPIDEM [Interacting]
     Indication: INSOMNIA
     Dosage: ONE 10MG ZOLPIDEM PILL
     Route: 065
  2. PAROXETINE [Suspect]
     Dosage: 30MG PAROXETINE EXTENDED RELEASE
     Route: 065
  3. RISPERIDONE [Concomitant]
     Dosage: NIGHTLY RISPERIDONE 3.5MG
     Route: 065

REACTIONS (5)
  - FEELING DRUNK [None]
  - VISION BLURRED [None]
  - MUSCLE DISORDER [None]
  - MANIA [None]
  - DRUG INTERACTION [None]
